FAERS Safety Report 5248226-1 (Version None)
Quarter: 2007Q1

REPORT INFORMATION
  Report Type: 
  Country: None (occurrence: None)
  Receive Date: 20070227
  Receipt Date: 20060817
  Transmission Date: 20070707
  Serious: No
  Sender: FDA-Public Use
  Company Number: US-BRISTOL-MYERS SQUIBB COMPANY-13481296

PATIENT
  Age: 64 Year
  Sex: Female
  Weight: 118 kg

DRUGS (7)
  1. GLUCOPHAGE [Suspect]
     Dates: start: 20060601
  2. BYETTA [Suspect]
     Indication: DIABETES MELLITUS NON-INSULIN-DEPENDENT
     Route: 058
     Dates: start: 20060601, end: 20060701
  3. BYETTA [Suspect]
     Route: 058
     Dates: start: 20060701
  4. INSULIN [Concomitant]
     Dates: start: 20000101
  5. HYOSCYAMINE [Concomitant]
  6. IMODIUM [Concomitant]
  7. IBS RELIEF [Concomitant]

REACTIONS (3)
  - BLOOD GLUCOSE ABNORMAL [None]
  - IRRITABLE BOWEL SYNDROME [None]
  - WEIGHT DECREASED [None]
